FAERS Safety Report 13772158 (Version 1)
Quarter: 2017Q3

REPORT INFORMATION
  Report Type: Spontaneous
  Country: PL (occurrence: PL)
  Receive Date: 20170720
  Receipt Date: 20170720
  Transmission Date: 20171127
  Serious: Yes (Other)
  Sender: FDA-Public Use
  Company Number: PL-JNJFOC-20170708406

PATIENT

DRUGS (2)
  1. IBRUTINIB [Suspect]
     Active Substance: IBRUTINIB
     Indication: LYMPHOCYTIC LYMPHOMA
     Route: 048
  2. IBRUTINIB [Suspect]
     Active Substance: IBRUTINIB
     Indication: CHRONIC LYMPHOCYTIC LEUKAEMIA
     Route: 048

REACTIONS (16)
  - Pneumonia [Unknown]
  - Haematochezia [Unknown]
  - Diarrhoea [Unknown]
  - Ischaemic stroke [Unknown]
  - Rash [Unknown]
  - Neutropenia [Unknown]
  - Upper gastrointestinal haemorrhage [Unknown]
  - Haemorrhagic diathesis [Unknown]
  - Herpes zoster [Unknown]
  - Epistaxis [Unknown]
  - Basal cell carcinoma [Unknown]
  - Hyphaema [Unknown]
  - Atrial fibrillation [Unknown]
  - Vomiting [Unknown]
  - Infection [Unknown]
  - Petechiae [Unknown]
